FAERS Safety Report 20997635 (Version 1)
Quarter: 2022Q2

REPORT INFORMATION
  Report Type: Report from Study
  Country: FR (occurrence: FR)
  Receive Date: 20220623
  Receipt Date: 20220623
  Transmission Date: 20220721
  Serious: Yes (Hospitalization, Other)
  Sender: FDA-Public Use
  Company Number: FR-EXELIXIS-XL18422047875

PATIENT
  Age: 67 Year
  Sex: Male
  Weight: 107.4 kg

DRUGS (11)
  1. CABOZANTINIB [Suspect]
     Active Substance: CABOZANTINIB
     Indication: Hormone-refractory prostate cancer
     Dosage: 40 MG, QD
     Route: 048
     Dates: start: 20210924, end: 20220104
  2. ATEZOLIZUMAB [Suspect]
     Active Substance: ATEZOLIZUMAB
     Indication: Hormone-refractory prostate cancer
     Dosage: 1200 MG, Q3WEEKS
     Route: 042
     Dates: start: 20210924, end: 20220104
  3. ATEZOLIZUMAB [Suspect]
     Active Substance: ATEZOLIZUMAB
     Dosage: 1200 MG, Q3WEEKS
     Route: 042
     Dates: start: 20220204
  4. ZOLPIDEM [Concomitant]
     Active Substance: ZOLPIDEM TARTRATE
  5. HYDROCHLOROTHIAZIDE [Concomitant]
     Active Substance: HYDROCHLOROTHIAZIDE
  6. CANDESARTAN [Concomitant]
     Active Substance: CANDESARTAN
  7. RACECADOTRIL [Concomitant]
     Active Substance: RACECADOTRIL
  8. PHLOROGLUCINOL [Concomitant]
     Active Substance: PHLOROGLUCINOL
  9. PRIMPERAN [Concomitant]
     Active Substance: METOCLOPRAMIDE HYDROCHLORIDE
  10. OXYCODONE [Concomitant]
     Active Substance: OXYCODONE
  11. ESOMEPRAZOLE [Concomitant]
     Active Substance: ESOMEPRAZOLE

REACTIONS (1)
  - Performance status decreased [Recovered/Resolved]

NARRATIVE: CASE EVENT DATE: 20220102
